FAERS Safety Report 5027389-7 (Version None)
Quarter: 2006Q2

REPORT INFORMATION
  Report Type: 
  Country: None (occurrence: None)
  Receive Date: 20060501
  Receipt Date: 20060213
  Transmission Date: 20061013
  Serious: Yes (Disabling)
  Sender: FDA-Public Use
  Company Number: 200610887BWH

PATIENT
  Age: 61 Year
  Sex: Female

DRUGS (14)
  1. NEXAVAR [Suspect]
     Indication: RENAL CELL CARCINOMA STAGE UNSPECIFIED
     Dosage: SEE IMAGE, ORAL
     Route: 048
     Dates: start: 20060121, end: 20060124
  2. NEXAVAR [Suspect]
     Indication: RENAL CELL CARCINOMA STAGE UNSPECIFIED
     Dosage: SEE IMAGE, ORAL
     Route: 048
     Dates: start: 20060111
  3. NEXAVAR [Suspect]
     Indication: RENAL CELL CARCINOMA STAGE UNSPECIFIED
     Dosage: SEE IMAGE, ORAL
     Route: 048
     Dates: start: 20060125
  4. PLAVIX [Concomitant]
  5. TRICOR [Concomitant]
  6. CYMBALTA [Concomitant]
  7. TOPAMAX [Concomitant]
  8. SYNTHROID [Concomitant]
  9. REMERON [Concomitant]
  10. FENTANYL [Concomitant]
  11. FLEXERIL [Concomitant]
  12. REGLAN [Concomitant]
  13. OXYCONTIN [Concomitant]
  14. HYDROCHLOROTHIAZIDE [Concomitant]

REACTIONS (10)
  - ACNE [None]
  - BLEEDING TIME PROLONGED [None]
  - DIARRHOEA [None]
  - DIFFICULTY IN WALKING [None]
  - FLUSHING [None]
  - LIP BLISTER [None]
  - LIP ULCERATION [None]
  - PAIN IN EXTREMITY [None]
  - PALMAR-PLANTAR ERYTHRODYSAESTHESIA SYNDROME [None]
  - RASH [None]
